FAERS Safety Report 25503739 (Version 2)
Quarter: 2025Q3

REPORT INFORMATION
  Report Type: Spontaneous
  Country: EU (occurrence: EU)
  Receive Date: 20250702
  Receipt Date: 20250814
  Transmission Date: 20251020
  Serious: No
  Sender: PFIZER
  Company Number: EU-PFIZER INC-202500126941

PATIENT
  Age: 15 Year
  Sex: Male
  Weight: 75 kg

DRUGS (1)
  1. GENOTROPIN [Suspect]
     Active Substance: SOMATROPIN
     Indication: Growth hormone deficiency
     Dosage: 2 MG, DAILY X 6 DAYS / 6 DAYS (1 DAY OFF) / 12 MG PEN
     Route: 058
     Dates: start: 202307

REACTIONS (4)
  - Device breakage [Not Recovered/Not Resolved]
  - Device leakage [Not Recovered/Not Resolved]
  - Drug dose omission by device [Unknown]
  - Expired device used [Unknown]

NARRATIVE: CASE EVENT DATE: 20250601
